FAERS Safety Report 12712188 (Version 1)
Quarter: 2016Q3

REPORT INFORMATION
  Report Type: Other
  Country: FR (occurrence: FR)
  Receive Date: 20160902
  Receipt Date: 20160902
  Transmission Date: 20161109
  Serious: Yes (Hospitalization)
  Sender: FDA-Public Use
  Company Number: FR-HIKMA PHARMACEUTICALS CO. LTD-2016FR008390

PATIENT

DRUGS (14)
  1. REMSIMA [Suspect]
     Active Substance: INFLIXIMAB
     Dosage: 400 MG, CYCLIC, 4 PERFUSIONS
     Route: 042
     Dates: start: 20160513, end: 20160513
  2. FIVASA                             /00747601/ [Concomitant]
     Active Substance: MESALAMINE
     Indication: COLITIS ULCERATIVE
     Dosage: 6 DF, DAILY
     Route: 065
  3. MESALAZINE [Concomitant]
     Active Substance: MESALAMINE
     Dosage: UNK
     Route: 048
  4. MESALAZINE [Concomitant]
     Active Substance: MESALAMINE
     Route: 054
  5. QUADRASA [Concomitant]
     Indication: COLITIS ULCERATIVE
     Dosage: UNK
     Route: 065
     Dates: end: 201605
  6. FLAGYL [Concomitant]
     Active Substance: METRONIDAZOLE\METRONIDAZOLE HYDROCHLORIDE
     Route: 065
  7. IMUREL                             /00001501/ [Concomitant]
     Active Substance: AZATHIOPRINE SODIUM
     Dosage: 3 DF, DAILY
     Route: 065
     Dates: end: 20160719
  8. REMSIMA [Suspect]
     Active Substance: INFLIXIMAB
     Dosage: 400 MG, CYCLIC, 4 PERFUSIONS
     Route: 042
     Dates: start: 20160701, end: 20160701
  9. OFLOXACINE [Concomitant]
     Active Substance: OFLOXACIN
     Dosage: UNK
     Route: 065
     Dates: end: 20160713
  10. CYMEVAN [Concomitant]
     Active Substance: GANCICLOVIR
     Dosage: UNK
     Route: 065
     Dates: end: 20160718
  11. REMSIMA [Suspect]
     Active Substance: INFLIXIMAB
     Indication: COLITIS ULCERATIVE
     Dosage: 400 MG, CYCLIC, 4 PERFUSIONS
     Route: 042
     Dates: start: 20160404, end: 20160404
  12. REMSIMA [Suspect]
     Active Substance: INFLIXIMAB
     Dosage: 300 MG, CYCLIC, 4 PERFUSIONS
     Route: 042
     Dates: start: 20160418, end: 20160418
  13. FIVASA                             /00747601/ [Concomitant]
     Active Substance: MESALAMINE
     Dosage: 8 DF, DAILY
     Route: 065
     Dates: start: 20160224, end: 201605
  14. CYMEVAN [Concomitant]
     Active Substance: GANCICLOVIR
     Dosage: UNK
     Route: 065
     Dates: end: 20160720

REACTIONS (1)
  - Drug ineffective [Unknown]

NARRATIVE: CASE EVENT DATE: 201606
